FAERS Safety Report 6218894-6 (Version None)
Quarter: 2009Q2

REPORT INFORMATION
  Report Type: 
  Country: None (occurrence: None)
  Receive Date: 20090608
  Receipt Date: 20090527
  Transmission Date: 20091009
  Serious: Yes (Hospitalization)
  Sender: FDA-Public Use
  Company Number: ES-SANOFI-SYNTHELABO-A01200905653

PATIENT
  Age: 76 Year
  Sex: Male

DRUGS (5)
  1. NITROPLAST [Concomitant]
     Indication: ISCHAEMIC CARDIOMYOPATHY
     Route: 062
     Dates: start: 20060601
  2. OMEPRAZOL [Concomitant]
     Indication: GASTRITIS PROPHYLAXIS
     Route: 048
     Dates: start: 20060601
  3. ENALAPRIL [Concomitant]
     Indication: HYPERTENSION
     Route: 048
     Dates: start: 19990101, end: 20090202
  4. PLAVIX [Interacting]
     Indication: ISCHAEMIC CARDIOMYOPATHY
     Route: 048
     Dates: start: 20060601, end: 20090115
  5. TROMALYT [Suspect]
     Indication: ISCHAEMIC CARDIOMYOPATHY
     Route: 048
     Dates: start: 20060601, end: 20090119

REACTIONS (4)
  - DRUG INTERACTION [None]
  - GLOMERULONEPHRITIS [None]
  - HENOCH-SCHONLEIN PURPURA [None]
  - RENAL FAILURE ACUTE [None]
